FAERS Safety Report 6427533-0 (Version None)
Quarter: 2009Q4

REPORT INFORMATION
  Report Type: 
  Country: None (occurrence: None)
  Receive Date: 20091104
  Receipt Date: 20091021
  Transmission Date: 20100525
  Serious: Yes (Other)
  Sender: FDA-Public Use
  Company Number: GB-MYLANLABS-2009S1018712

PATIENT
  Sex: Male
  Weight: 2.36 kg

DRUGS (4)
  1. LAMOTRIGINE [Suspect]
     Indication: EPILEPSY
     Route: 064
  2. CLOBAZAM [Suspect]
     Indication: EPILEPSY
     Route: 064
  3. VIGABATRIN [Suspect]
     Indication: EPILEPSY
     Route: 064
  4. TOPIRAMATE [Suspect]

REACTIONS (2)
  - CONGENITAL GENITAL MALFORMATION [None]
  - DRUG EXPOSURE DURING PREGNANCY [None]
